FAERS Safety Report 12782783 (Version 1)
Quarter: 2016Q3

REPORT INFORMATION
  Report Type: Report from Study
  Country: US (occurrence: US)
  Receive Date: 20160927
  Receipt Date: 20160927
  Transmission Date: 20161109
  Serious: No
  Sender: FDA-Public Use
  Company Number: PHEH2016US024541

PATIENT
  Sex: Female

DRUGS (1)
  1. ENTRESTO [Suspect]
     Active Substance: SACUBITRIL\VALSARTAN
     Indication: CARDIAC FAILURE
     Dosage: 50 MG, BID
     Route: 048
     Dates: start: 20160701

REACTIONS (6)
  - Drug effect delayed [Recovering/Resolving]
  - Exercise tolerance decreased [Unknown]
  - Fatigue [Recovering/Resolving]
  - Energy increased [Unknown]
  - Gait disturbance [Unknown]
  - Anger [Unknown]
